FAERS Safety Report 23039035 (Version 1)
Quarter: 2023Q4

REPORT INFORMATION
  Report Type: Spontaneous
  Country: US (occurrence: None)
  Receive Date: 20231006
  Receipt Date: 20231006
  Transmission Date: 20240110
  Serious: No
  Sender: FDA-Public Use
  Company Number: None

PATIENT
  Sex: Male
  Weight: 105.1 kg

DRUGS (2)
  1. ACALABRUTINIB [Suspect]
     Active Substance: ACALABRUTINIB
  2. RITUXIAB (MOAB C2B6 ANTI CD20, CHIMERIC) [Concomitant]

REACTIONS (3)
  - Cellulitis [None]
  - Infection in an immunocompromised host [None]
  - Pain [None]

NARRATIVE: CASE EVENT DATE: 20230326
